FAERS Safety Report 20791154 (Version 1)
Quarter: 2022Q2

REPORT INFORMATION
  Report Type: Spontaneous
  Country: US (occurrence: None)
  Receive Date: 20220505
  Receipt Date: 20220505
  Transmission Date: 20220721
  Serious: Yes (Hospitalization)
  Sender: FDA-Public Use
  Company Number: None

PATIENT
  Age: 16 Year
  Sex: Male
  Weight: 117.9 kg

DRUGS (9)
  1. DOXYCYCLINE HYCLATE [Suspect]
     Active Substance: DOXYCYCLINE HYCLATE
     Indication: Hidradenitis
     Dosage: OTHER QUANTITY : 1 TABLET(S);?FREQUENCY : TWICE A DAY;?
     Route: 048
  2. Fluoxetine HCL (10 mg) [Concomitant]
  3. Fluticasone Nasal Spray (50mcg) [Concomitant]
  4. Olopatadine HCL (0.1) [Concomitant]
  5. Vitamin D3 (1000 IU) [Concomitant]
  6. Calcium (2 oral pills) [Concomitant]
  7. Doxycycline Hyclate (DISCONTINUED) [Concomitant]
  8. Methylprednisolone (4mg) (STEROID) [Concomitant]
  9. Occasional Melatonin usage [Concomitant]

REACTIONS (4)
  - Contusion [None]
  - Urticaria [None]
  - Rash [None]
  - Dyspnoea [None]

NARRATIVE: CASE EVENT DATE: 20220504
